FAERS Safety Report 5844579-1 (Version None)
Quarter: 2008Q3

REPORT INFORMATION
  Report Type: 
  Country: None (occurrence: None)
  Receive Date: 20080813
  Receipt Date: 20080813
  Transmission Date: 20090109
  Serious: Yes (Other)
  Sender: FDA-Public Use
  Company Number: None

PATIENT
  Sex: Female
  Weight: 101.1521 kg

DRUGS (1)
  1. METHYLPHENIDATE HCL [Suspect]
     Dosage: 20 MG TID
     Dates: start: 20080701, end: 20080806

REACTIONS (1)
  - FATIGUE [None]
